FAERS Safety Report 20309129 (Version 1)
Quarter: 2022Q1

REPORT INFORMATION
  Report Type: Spontaneous
  Country: US (occurrence: None)
  Receive Date: 20220107
  Receipt Date: 20220107
  Transmission Date: 20220423
  Serious: Yes (Hospitalization)
  Sender: FDA-Public Use
  Company Number: None

PATIENT
  Sex: Female
  Weight: 76.7 kg

DRUGS (4)
  1. DACARBAZINE [Suspect]
     Active Substance: DACARBAZINE
     Indication: Product used for unknown indication
     Dates: end: 20211221
  2. DOXORUBICIN HYDROCHLORIDE [Suspect]
     Active Substance: DOXORUBICIN HYDROCHLORIDE
     Indication: Product used for unknown indication
     Dates: end: 20211221
  3. BRENTUXIMAB VEDOTIN [Suspect]
     Active Substance: BRENTUXIMAB VEDOTIN
     Indication: Product used for unknown indication
     Dates: end: 20211221
  4. VINBLASTINE SULFATE [Suspect]
     Active Substance: VINBLASTINE SULFATE
     Indication: Product used for unknown indication
     Dates: end: 20211221

REACTIONS (6)
  - Febrile neutropenia [None]
  - Palpitations [None]
  - Sinus tachycardia [None]
  - Diarrhoea [None]
  - Nausea [None]
  - Vomiting [None]

NARRATIVE: CASE EVENT DATE: 20211228
